FAERS Safety Report 12790460 (Version 2)
Quarter: 2016Q4

REPORT INFORMATION
  Report Type: Spontaneous
  Country: US (occurrence: US)
  Receive Date: 20160929
  Receipt Date: 20161013
  Transmission Date: 20170207
  Serious: Yes (Hospitalization)
  Sender: FDA-Public Use
  Company Number: US-BAXTER-2016BAX048810

PATIENT
  Age: 77 Year
  Sex: Male

DRUGS (2)
  1. TISSEEL [Suspect]
     Active Substance: FIBRINOGEN HUMAN\THROMBIN HUMAN
     Indication: SPINAL FUSION SURGERY
  2. TISSEEL [Suspect]
     Active Substance: FIBRINOGEN HUMAN\THROMBIN HUMAN
     Indication: SPINAL DECOMPRESSION
     Route: 065
     Dates: start: 20150812

REACTIONS (4)
  - Muscular weakness [Unknown]
  - Product quality issue [Unknown]
  - Back pain [Unknown]
  - Mass [Unknown]

NARRATIVE: CASE EVENT DATE: 20150823
